FAERS Safety Report 12234760 (Version 1)
Quarter: 2016Q2

REPORT INFORMATION
  Report Type: Spontaneous
  Country: JP (occurrence: JP)
  Receive Date: 20160404
  Receipt Date: 20160404
  Transmission Date: 20160815
  Serious: Yes (Other)
  Sender: FDA-Public Use
  Company Number: JP-PFIZER INC-2016079170

PATIENT
  Age: 11 Year
  Sex: Male

DRUGS (3)
  1. BENEFIX [Suspect]
     Active Substance: COAGULATION FACTOR IX RECOMBINANT HUMAN\ISOPROPYL ALCOHOL
     Indication: FACTOR IX DEFICIENCY
     Dosage: 1000 IU, 2X/WEEK
     Route: 042
  2. BENEFIX [Suspect]
     Active Substance: COAGULATION FACTOR IX RECOMBINANT HUMAN\ISOPROPYL ALCOHOL
     Dosage: 2000 IU, DAILY
     Route: 042
     Dates: end: 20160207
  3. BENEFIX [Suspect]
     Active Substance: COAGULATION FACTOR IX RECOMBINANT HUMAN\ISOPROPYL ALCOHOL
     Dosage: 1500 IU, 2X/WEEK
     Route: 042
     Dates: start: 20150327

REACTIONS (4)
  - Arthralgia [Unknown]
  - Joint swelling [Unknown]
  - Haemarthrosis [Recovered/Resolved]
  - Coagulation factor IX level decreased [Unknown]

NARRATIVE: CASE EVENT DATE: 201503
